FAERS Safety Report 24580366 (Version 1)
Quarter: 2024Q4

REPORT INFORMATION
  Report Type: Spontaneous
  Country: PT (occurrence: PT)
  Receive Date: 20241105
  Receipt Date: 20241105
  Transmission Date: 20250115
  Serious: Yes (Other)
  Sender: BAXTER
  Company Number: None

PATIENT
  Age: 83 Year
  Sex: Female
  Weight: 59 kg

DRUGS (4)
  1. PROPOFOL [Suspect]
     Active Substance: PROPOFOL
     Indication: General anaesthesia
     Dosage: 100 MG INDUCTION OF ANESTHESIA, 1 TOTAL, PHARMACEUTICAL FORM (DOSAGE FORM): EMULSION FOR INJECTION O
     Route: 042
     Dates: start: 20241009, end: 20241009
  2. CEFTRIAXONE [Concomitant]
     Active Substance: CEFTRIAXONE
     Indication: Product used for unknown indication
     Dosage: 2 G, 1 AS NECESSARY
     Route: 042
  3. GENTAMICIN [Concomitant]
     Active Substance: GENTAMICIN
     Indication: Product used for unknown indication
     Dosage: 160 MG, 1 AS NECESSARY
     Route: 065
  4. FENTANYL [Concomitant]
     Active Substance: FENTANYL
     Indication: Product used for unknown indication
     Dosage: 75 UG, 1 AS NECESSARY
     Route: 065

REACTIONS (1)
  - Opisthotonus [Recovered/Resolved]

NARRATIVE: CASE EVENT DATE: 20241009
